FAERS Safety Report 15602134 (Version 1)
Quarter: 2018Q4

REPORT INFORMATION
  Report Type: Spontaneous
  Country: CA (occurrence: CA)
  Receive Date: 20181109
  Receipt Date: 20181109
  Transmission Date: 20190205
  Serious: Yes (Other)
  Sender: FDA-Public Use
  Company Number: CA-TEVA-2018-CA-972650

PATIENT
  Sex: Female

DRUGS (1)
  1. ACT-VALSARTAN [Suspect]
     Active Substance: VALSARTAN
     Indication: BLOOD PRESSURE MANAGEMENT
     Dates: start: 2013, end: 20180713

REACTIONS (7)
  - Organ failure [Unknown]
  - Shock [Unknown]
  - Emotional disorder [Unknown]
  - Injury [Unknown]
  - Neoplasm malignant [Unknown]
  - Emotional distress [Unknown]
  - Anxiety [Unknown]
